FAERS Safety Report 5320652-1 (Version None)
Quarter: 2007Q2

REPORT INFORMATION
  Report Type: 
  Country: None (occurrence: None)
  Receive Date: 20070509
  Receipt Date: 20070427
  Transmission Date: 20071010
  Serious: Yes (Hospitalization)
  Sender: FDA-Public Use
  Company Number: FR-PFIZER INC-2007026305

PATIENT
  Age: 72 Year
  Sex: Male

DRUGS (4)
  1. ZYVOXID TABLET [Suspect]
     Indication: OSTEITIS
     Route: 048
     Dates: start: 20070223, end: 20070302
  2. ZYVOXID TABLET [Suspect]
     Indication: STAPHYLOCOCCAL INFECTION
  3. CIPROFLOXACIN HCL [Suspect]
     Indication: STAPHYLOCOCCAL INFECTION
     Route: 048
     Dates: start: 20070223, end: 20070302
  4. VANCOMYCIN [Concomitant]
     Indication: STAPHYLOCOCCAL INFECTION

REACTIONS (3)
  - ARTHRALGIA [None]
  - POLYARTHRITIS [None]
  - PYREXIA [None]
